FAERS Safety Report 21529545 (Version 6)
Quarter: 2023Q1

REPORT INFORMATION
  Report Type: Spontaneous
  Country: US (occurrence: US)
  Receive Date: 20221031
  Receipt Date: 20230214
  Transmission Date: 20230418
  Serious: Yes (Hospitalization, Other)
  Sender: FDA-Public Use
  Company Number: US-PFIZER INC-PV202200092005

PATIENT
  Age: 83 Year
  Sex: Female

DRUGS (1)
  1. IBRANCE [Suspect]
     Active Substance: PALBOCICLIB
     Dosage: 125 MG
     Dates: end: 202212

REACTIONS (5)
  - Nocturnal dyspnoea [Unknown]
  - Dyspnoea [Unknown]
  - Cough [Recovering/Resolving]
  - Dizziness [Unknown]
  - Urinary tract infection [Unknown]
